FAERS Safety Report 19019904 (Version 1)
Quarter: 2021Q1

REPORT INFORMATION
  Report Type: Report from Study
  Country: ZA (occurrence: ZA)
  Receive Date: 20210317
  Receipt Date: 20210317
  Transmission Date: 20210420
  Serious: Yes (Other)
  Sender: FDA-Public Use
  Company Number: NVSC2021ZA049073

PATIENT
  Sex: Male

DRUGS (4)
  1. ENTRESTO [Suspect]
     Active Substance: SACUBITRIL\VALSARTAN
     Indication: CARDIAC FAILURE
     Dosage: 50 MG, BID
     Route: 048
  2. DILATREND [Suspect]
     Active Substance: CARVEDILOL
     Indication: CARDIAC FAILURE
     Dosage: 12 MG, QD
     Route: 048
  3. PRAVASTATIN. [Suspect]
     Active Substance: PRAVASTATIN
     Indication: CARDIAC FAILURE
     Dosage: 40 MG, QD
     Route: 048
  4. FUROSEMIDE. [Suspect]
     Active Substance: FUROSEMIDE
     Indication: CARDIAC FAILURE
     Dosage: 40 MG, QD
     Route: 048

REACTIONS (13)
  - Ejection fraction decreased [Unknown]
  - Abdominal distension [Unknown]
  - Blood pressure systolic increased [Unknown]
  - Congestive cardiomyopathy [Unknown]
  - Peripheral swelling [Unknown]
  - Fatigue [Unknown]
  - Product use in unapproved indication [Unknown]
  - Cardiac failure [Unknown]
  - Dyspnoea [Unknown]
  - Joint swelling [Unknown]
  - Gait disturbance [Unknown]
  - N-terminal prohormone brain natriuretic peptide increased [Unknown]
  - Dizziness [Unknown]
